FAERS Safety Report 12841674 (Version 6)
Quarter: 2016Q4

REPORT INFORMATION
  Report Type: Spontaneous
  Country: US (occurrence: US)
  Receive Date: 20161012
  Receipt Date: 20161223
  Transmission Date: 20170207
  Serious: Yes (Hospitalization, Other)
  Sender: FDA-Public Use
  Company Number: US-ACTELION-A-US2016-143827

PATIENT
  Age: 13 Year
  Sex: Male

DRUGS (13)
  1. PROAIR HFA [Concomitant]
     Active Substance: ALBUTEROL SULFATE
     Dosage: 2 PUFF, PRN
     Dates: start: 20150326
  2. UPTRAVI [Suspect]
     Active Substance: SELEXIPAG
     Indication: PULMONARY ARTERIAL HYPERTENSION
     Dosage: 800 MCG, BID
     Route: 048
     Dates: start: 20160921
  3. TYVASO [Concomitant]
     Active Substance: TREPROSTINIL
     Dosage: 5 BREATHS/MIN, Q6HRS
  4. ALBUTEROL. [Concomitant]
     Active Substance: ALBUTEROL
     Dosage: UNK, PRN
  5. TYLENOL [Concomitant]
     Active Substance: ACETAMINOPHEN
     Dosage: UNK
     Dates: start: 20161102
  6. OPSUMIT [Suspect]
     Active Substance: MACITENTAN
     Indication: PULMONARY ARTERIAL HYPERTENSION
     Dosage: 10 MG, QD
     Route: 048
     Dates: start: 20160112
  7. BUDESONIDE W/FORMOTEROL [Concomitant]
     Active Substance: BUDESONIDE\FORMOTEROL
     Dosage: 2 PUFF, UNK
  8. TADALAFIL [Concomitant]
     Active Substance: TADALAFIL
     Dosage: 20 MG, UNK
  9. REMODULIN [Suspect]
     Active Substance: TREPROSTINIL
     Indication: PRODUCT USED FOR UNKNOWN INDICATION
     Dosage: UNK
     Route: 058
     Dates: start: 20161104
  10. ADCIRCA [Concomitant]
     Active Substance: TADALAFIL
     Dosage: 20 MG, QD
     Dates: start: 20161102
  11. DIGOXIN. [Concomitant]
     Active Substance: DIGOXIN
     Dosage: 125 MG, QD
     Dates: start: 20160816
  12. SINGULAIR [Concomitant]
     Active Substance: MONTELUKAST SODIUM
     Dosage: 5 MG, QD
  13. MONTELUKAST [Concomitant]
     Active Substance: MONTELUKAST SODIUM

REACTIONS (13)
  - Condition aggravated [Unknown]
  - Headache [Unknown]
  - Dizziness [Unknown]
  - Rash generalised [Not Recovered/Not Resolved]
  - Pain in jaw [Unknown]
  - Infusion site pain [Unknown]
  - Pulmonary arterial hypertension [Unknown]
  - Infusion site erythema [Unknown]
  - Right ventricular dysfunction [Not Recovered/Not Resolved]
  - Rash erythematous [Unknown]
  - Systolic dysfunction [Not Recovered/Not Resolved]
  - Unevaluable event [Unknown]
  - Hospitalisation [Unknown]

NARRATIVE: CASE EVENT DATE: 2016
